FAERS Safety Report 5247562-2 (Version None)
Quarter: 2007Q1

REPORT INFORMATION
  Report Type: 
  Country: None (occurrence: None)
  Receive Date: 20070227
  Receipt Date: 20070216
  Transmission Date: 20070707
  Serious: Yes (Hospitalization)
  Sender: FDA-Public Use
  Company Number: PHNR2007AU00523

PATIENT
  Age: 99 Year
  Sex: Male

DRUGS (8)
  1. ARTANE [Concomitant]
     Dates: start: 19980101, end: 20000101
  2. COMTAN [Suspect]
     Indication: PARKINSON'S DISEASE
     Route: 048
  3. CABASER [Suspect]
     Indication: PARKINSON'S DISEASE
     Dosage: 2 MG, UNK
     Route: 048
  4. ZESTRIL [Concomitant]
  5. MICARDIS HCT [Concomitant]
  6. SINEMET [Concomitant]
     Dates: start: 19980101
  7. SINEMET [Concomitant]
     Dosage: 100/25 2 DOSES TWICE DAILY
     Dates: start: 20010101
  8. STALEVO 100 [Suspect]
     Indication: PARKINSON'S DISEASE
     Route: 048

REACTIONS (8)
  - AGGRESSION [None]
  - CERVICAL VERTEBRAL FRACTURE [None]
  - FALL [None]
  - HOMICIDAL IDEATION [None]
  - PARANOIA [None]
  - RAPID EYE MOVEMENTS SLEEP ABNORMAL [None]
  - RESPIRATORY ARREST [None]
  - SLEEP DISORDER [None]
